FAERS Safety Report 8362960-6 (Version None)
Quarter: 2012Q2

REPORT INFORMATION
  Report Type: 
  Country: None (occurrence: None)
  Receive Date: 20120516
  Receipt Date: 20110913
  Transmission Date: 20120825
  Serious: Yes (Hospitalization, Other)
  Sender: FDA-Public Use
  Company Number: US-ALEXION-A201101390

PATIENT
  Sex: Female

DRUGS (3)
  1. CYCLOSPORINE [Suspect]
     Indication: BONE MARROW FAILURE
     Dosage: UNK
     Dates: start: 20110801
  2. NEUPOGEN [Concomitant]
     Dosage: UNK, 3 TIMES PER WEEK
  3. SOLIRIS [Suspect]
     Indication: PAROXYSMAL NOCTURNAL HAEMOGLOBINURIA
     Dosage: UNK
     Route: 042

REACTIONS (4)
  - BONE MARROW FAILURE [None]
  - FEELING COLD [None]
  - TREMOR [None]
  - UNRESPONSIVE TO STIMULI [None]
